FAERS Safety Report 21312149 (Version 1)
Quarter: 2022Q3

REPORT INFORMATION
  Report Type: Spontaneous
  Country: US (occurrence: None)
  Receive Date: 20220909
  Receipt Date: 20220909
  Transmission Date: 20221027
  Serious: No
  Sender: FDA-Public Use
  Company Number: US-ARIS GLOBAL-202204-0700

PATIENT
  Sex: Female

DRUGS (14)
  1. OXERVATE [Suspect]
     Active Substance: CENEGERMIN-BKBJ
     Indication: Neurotrophic keratopathy
     Route: 047
     Dates: start: 20200320, end: 20200515
  2. OXERVATE [Suspect]
     Active Substance: CENEGERMIN-BKBJ
     Indication: Ulcerative keratitis
     Route: 047
     Dates: start: 20220417
  3. REFRESH CLASSIC [Concomitant]
     Active Substance: POLYVINYL ALCOHOL\POVIDONE
  4. COMBIGAN [Concomitant]
     Active Substance: BRIMONIDINE TARTRATE\TIMOLOL MALEATE
     Dosage: 0.2%-0.5%
  5. METHOTREXATE [Concomitant]
     Active Substance: METHOTREXATE
  6. HYDROXYCHLOROQUINE SULFATE [Concomitant]
     Active Substance: HYDROXYCHLOROQUINE SULFATE
  7. MAXITROL [Concomitant]
     Active Substance: DEXAMETHASONE\NEOMYCIN SULFATE\POLYMYXIN B SULFATE
     Dosage: 0.1% DROPS SUSPENSION
  8. FOLIC ACID [Concomitant]
     Active Substance: FOLIC ACID
  9. VYZULTA [Concomitant]
     Active Substance: LATANOPROSTENE BUNOD
  10. FAMOTIDINE [Concomitant]
     Active Substance: FAMOTIDINE
  11. MELOXICAM [Concomitant]
     Active Substance: MELOXICAM
  12. LISINOPRIL [Concomitant]
     Active Substance: LISINOPRIL
  13. PROLIA [Concomitant]
     Active Substance: DENOSUMAB
     Dosage: 60 MG/ML SYRINGE
  14. VITAMIN D3 [Concomitant]
     Active Substance: CHOLECALCIFEROL
     Dosage: 10(400)/ML DROPS

REACTIONS (5)
  - Malaise [Unknown]
  - Eye pain [Unknown]
  - Eye irritation [Unknown]
  - Lacrimation increased [Unknown]
  - Ocular hyperaemia [Unknown]
